FAERS Safety Report 21628763 (Version 1)
Quarter: 2022Q4

REPORT INFORMATION
  Report Type: Report from Study
  Country: US (occurrence: US)
  Receive Date: 20221122
  Receipt Date: 20221122
  Transmission Date: 20230113
  Serious: Yes (Hospitalization)
  Sender: FDA-Public Use
  Company Number: US-ABBVIE-4208960

PATIENT
  Sex: Female

DRUGS (2)
  1. HUMIRA [Suspect]
     Active Substance: ADALIMUMAB
     Indication: Ankylosing spondylitis
     Dosage: CITRATE FREE
     Route: 058
  2. HUMIRA [Suspect]
     Active Substance: ADALIMUMAB
     Indication: Rheumatoid arthritis

REACTIONS (8)
  - Colitis [Unknown]
  - Musculoskeletal disorder [Unknown]
  - Vitamin D deficiency [Unknown]
  - Diarrhoea [Recovering/Resolving]
  - Vitamin B complex deficiency [Unknown]
  - Back disorder [Unknown]
  - Mobility decreased [Unknown]
  - Eye disorder [Recovering/Resolving]
